FAERS Safety Report 10507235 (Version 1)
Quarter: 2014Q3

REPORT INFORMATION
  Report Type: Spontaneous
  Country: US (occurrence: None)
  Receive Date: 20140915
  Receipt Date: 20140915
  Transmission Date: 20150326
  Serious: Yes (Other)
  Sender: FDA-Public Use
  Company Number: 2013-US-001449

PATIENT
  Age: 49 Year
  Sex: Female
  Weight: 53.5 kg

DRUGS (2)
  1. XYREM [Suspect]
     Active Substance: SODIUM OXYBATE
     Indication: NARCOLEPSY
     Route: 048
     Dates: start: 20130920
  2. NUVIGIL [Suspect]
     Active Substance: ARMODAFINIL
     Indication: PRODUCT USED FOR UNKNOWN INDICATION
     Route: 048

REACTIONS (15)
  - Apnoea [None]
  - Diverticulitis [None]
  - Irritability [None]
  - Heart rate increased [None]
  - Snoring [None]
  - Blood pressure increased [None]
  - Headache [None]
  - Impaired driving ability [None]
  - Abnormal dreams [None]
  - Gastrooesophageal reflux disease [None]
  - Local swelling [None]
  - Insomnia [None]
  - Tremor [None]
  - Fatigue [None]
  - Dysphonia [None]

NARRATIVE: CASE EVENT DATE: 201309
